FAERS Safety Report 7325540-7 (Version None)
Quarter: 2011Q1

REPORT INFORMATION
  Report Type: 
  Country: None (occurrence: None)
  Receive Date: 20110302
  Receipt Date: 20110222
  Transmission Date: 20110831
  Serious: Yes (Other)
  Sender: FDA-Public Use
  Company Number: US-PERRIGO-11US001529

PATIENT
  Age: 14 Year
  Sex: Female

DRUGS (1)
  1. LORATADINE 10 MG 612 [Suspect]
     Indication: PRODUCT USED FOR UNKNOWN INDICATION
     Dosage: 14 TABLETS, SINGLE
     Route: 048
     Dates: start: 20110222, end: 20110222

REACTIONS (4)
  - TREMOR [None]
  - DIZZINESS [None]
  - OVERDOSE [None]
  - PALLOR [None]
